FAERS Safety Report 8544354-3 (Version None)
Quarter: 2012Q3

REPORT INFORMATION
  Report Type: 
  Country: None (occurrence: None)
  Receive Date: 20120727
  Receipt Date: 20120719
  Transmission Date: 20120928
  Serious: Yes (Hospitalization)
  Sender: FDA-Public Use
  Company Number: DE-ABBOTT-12P-062-0960116-00

PATIENT
  Age: 84 Year
  Sex: Male

DRUGS (1)
  1. LUPRON [Suspect]
     Indication: PROSTATE CANCER
     Route: 058
     Dates: start: 20010419

REACTIONS (2)
  - MYOCARDIAL INFARCTION [None]
  - CORONARY ARTERY DISEASE [None]
